FAERS Safety Report 9357868 (Version 1)
Quarter: 2013Q2

REPORT INFORMATION
  Report Type: Spontaneous
  Country: FR (occurrence: FR)
  Receive Date: 20130620
  Receipt Date: 20130620
  Transmission Date: 20140414
  Serious: Yes (Death)
  Sender: FDA-Public Use
  Company Number: FR-SANOFI-AVENTIS-2013SA060775

PATIENT
  Age: 58 Year
  Sex: Male
  Weight: 98 kg

DRUGS (4)
  1. LOVENOX [Suspect]
     Indication: THROMBOSIS PROPHYLAXIS
     Route: 058
     Dates: start: 20130309, end: 20130331
  2. TOPALGIC LP [Concomitant]
     Dosage: STRENGTH: 100 MG
     Route: 048
     Dates: start: 20130309, end: 20130331
  3. DAFALGAN [Concomitant]
     Route: 048
     Dates: start: 20130309, end: 20130331
  4. PERFALGAN [Concomitant]
     Dosage: STRENGTH: 10 MG/ML
     Route: 042
     Dates: start: 20130326, end: 20130328

REACTIONS (2)
  - Pulmonary embolism [Fatal]
  - Drug ineffective [Fatal]
